FAERS Safety Report 24650772 (Version 1)
Quarter: 2024Q4

REPORT INFORMATION
  Report Type: Other
  Country: NP (occurrence: NP)
  Receive Date: 20241122
  Receipt Date: 20241122
  Transmission Date: 20250115
  Serious: Yes (Hospitalization, Other)
  Sender: ANI
  Company Number: NP-ANIPHARMA-012876

PATIENT
  Age: 46 Year
  Sex: Male

DRUGS (1)
  1. MORPHINE [Suspect]
     Active Substance: MORPHINE
     Indication: Product used for unknown indication

REACTIONS (3)
  - Herpes simplex encephalitis [Recovering/Resolving]
  - Drug abuse [Unknown]
  - Drug dependence [Unknown]
